FAERS Safety Report 11106445 (Version 1)
Quarter: 2015Q2

REPORT INFORMATION
  Report Type: Spontaneous
  Country: GB (occurrence: GB)
  Receive Date: 20150512
  Receipt Date: 20150512
  Transmission Date: 20150821
  Serious: Yes (Other)
  Sender: FDA-Public Use
  Company Number: GB-THROMBOGENICS NV-SPO-2014-0965

PATIENT
  Age: 83 Year
  Sex: Female

DRUGS (1)
  1. JETREA [Suspect]
     Active Substance: OCRIPLASMIN
     Indication: VITREOUS ADHESIONS
     Dosage: 0.125 MG, ONE TIME DOSE
     Route: 031
     Dates: start: 20140630, end: 20140630

REACTIONS (5)
  - Visual impairment [Recovered/Resolved]
  - Retinogram abnormal [Unknown]
  - Visual acuity reduced [Recovered/Resolved]
  - Pupillary reflex impaired [Unknown]
  - Vision blurred [Unknown]

NARRATIVE: CASE EVENT DATE: 20140630
